FAERS Safety Report 16955662 (Version 1)
Quarter: 2019Q4

REPORT INFORMATION
  Report Type: Spontaneous
  Country: US (occurrence: US)
  Receive Date: 20191024
  Receipt Date: 20191024
  Transmission Date: 20200122
  Serious: No
  Sender: FDA-Public Use
  Company Number: US-PFIZER INC-2019454897

PATIENT
  Age: 72 Year
  Sex: Female
  Weight: 52.62 kg

DRUGS (2)
  1. ALPRAZOLAM. [Suspect]
     Active Substance: ALPRAZOLAM
     Dosage: 0.25 MG, AS NEEDED [1-3 TABLETS DURING DAY AS NEEDED;3 TABLETS AT NIGHT ON 16OCT2019 AND 17OCT2019]
     Route: 048
  2. ALPRAZOLAM. [Suspect]
     Active Substance: ALPRAZOLAM
     Dosage: 2MG BAR: 1/2 BAR (1MG) TAKEN AT NIGHT

REACTIONS (5)
  - Depression [Unknown]
  - Incorrect dose administered [Unknown]
  - Costochondritis [Unknown]
  - Disease recurrence [Unknown]
  - Insomnia [Unknown]

NARRATIVE: CASE EVENT DATE: 20191017
